FAERS Safety Report 6656188-5 (Version None)
Quarter: 2010Q1

REPORT INFORMATION
  Report Type: 
  Country: None (occurrence: None)
  Receive Date: 20100329
  Receipt Date: 20100316
  Transmission Date: 20100710
  Serious: Yes (Hospitalization, Other)
  Sender: FDA-Public Use
  Company Number: NO-ABBOTT-10P-122-0632784-00

PATIENT
  Sex: Male

DRUGS (4)
  1. HUMIRA [Suspect]
     Indication: CROHN'S DISEASE
     Route: 058
  2. HUMIRA [Suspect]
  3. HUMIRA [Suspect]
  4. PREDNISONE TAB [Concomitant]
     Indication: CROHN'S DISEASE
     Dosage: HIGHEST MAINTAINED DOSE

REACTIONS (5)
  - AUTOIMMUNE DISORDER [None]
  - HAEMOPTYSIS [None]
  - INFECTION [None]
  - LUNG INFILTRATION [None]
  - PYREXIA [None]
